FAERS Safety Report 9288306 (Version 1)
Quarter: 2013Q2

REPORT INFORMATION
  Report Type: Report from Study
  Country: DE (occurrence: DE)
  Receive Date: 20130514
  Receipt Date: 20130514
  Transmission Date: 20140414
  Serious: Yes (Other)
  Sender: FDA-Public Use
  Company Number: DE-BAYER-2013-059437

PATIENT
  Sex: Female
  Weight: 72 kg

DRUGS (1)
  1. EXTAVIA [Suspect]
     Indication: MULTIPLE SCLEROSIS
     Dosage: UNK
     Route: 058
     Dates: start: 20101028, end: 20121016

REACTIONS (5)
  - Cardiac aneurysm [Not Recovered/Not Resolved]
  - Blood pressure increased [None]
  - Multiple sclerosis relapse [Recovering/Resolving]
  - Depression [Not Recovered/Not Resolved]
  - Therapeutic product ineffective [None]
